FAERS Safety Report 11773122 (Version 1)
Quarter: 2015Q4

REPORT INFORMATION
  Report Type: Spontaneous
  Country: US (occurrence: US)
  Receive Date: 20151124
  Receipt Date: 20151124
  Transmission Date: 20160304
  Serious: Yes (Other)
  Sender: FDA-Public Use
  Company Number: US-SA-2015SA189865

PATIENT
  Age: 47 Year
  Sex: Male

DRUGS (2)
  1. LANTUS SOLOSTAR [Suspect]
     Active Substance: INSULIN GLARGINE
     Indication: DIABETES MELLITUS
     Route: 065
     Dates: start: 20151106, end: 20151113
  2. SOLOSTAR [Concomitant]
     Active Substance: DEVICE
     Dates: start: 20151106, end: 20151113

REACTIONS (2)
  - Muscle spasms [Recovering/Resolving]
  - Abdominal pain upper [Recovering/Resolving]
